FAERS Safety Report 7281249-X (Version None)
Quarter: 2011Q1

REPORT INFORMATION
  Report Type: 
  Country: None (occurrence: None)
  Receive Date: 20110203
  Receipt Date: 20110203
  Transmission Date: 20110831
  Serious: Yes (Other)
  Sender: FDA-Public Use
  Company Number: None

PATIENT
  Age: 60 Year
  Sex: Male
  Weight: 86.1834 kg

DRUGS (4)
  1. SIMVASTATIN [Suspect]
     Indication: CARDIAC DISORDER
     Dosage: 1 TABLET DAILY PO
     Route: 048
     Dates: start: 20101001, end: 20110130
  2. SIMVASTATIN [Suspect]
     Indication: CORONARY ARTERY BYPASS
     Dosage: 1 TABLET DAILY PO
     Route: 048
     Dates: start: 20101001, end: 20110130
  3. LOVASTATIN [Suspect]
     Indication: CORONARY ARTERY BYPASS
     Dosage: 1 TABLET DAILY PO
     Route: 048
     Dates: start: 20060301, end: 20100707
  4. LOVASTATIN [Suspect]
     Indication: CARDIAC DISORDER
     Dosage: 1 TABLET DAILY PO
     Route: 048
     Dates: start: 20060301, end: 20100707

REACTIONS (3)
  - MEMORY IMPAIRMENT [None]
  - FRUSTRATION [None]
  - MENTAL DISORDER [None]
